FAERS Safety Report 9588003 (Version 1)
Quarter: 2013Q4

REPORT INFORMATION
  Report Type: Spontaneous
  Country: US (occurrence: US)
  Receive Date: 20131003
  Receipt Date: 20131003
  Transmission Date: 20140711
  Serious: No
  Sender: FDA-Public Use
  Company Number: US-AMGEN-USASP2012067620

PATIENT
  Sex: Female

DRUGS (9)
  1. ENBREL [Suspect]
     Indication: RHEUMATOID ARTHRITIS
     Dosage: 50 MG, QWK
     Route: 058
  2. VITAMIN D3 [Concomitant]
     Dosage: UNK
  3. VITAMIN C                          /00008001/ [Concomitant]
     Dosage: 500 MG, UNK
  4. ZINC [Concomitant]
     Dosage: 30 MG, UNK
  5. MAGNESIUM [Concomitant]
     Dosage: 300 MG, UNK
  6. RISPERDAL [Concomitant]
     Dosage: 3 MG, UNK
  7. TURMERIC                           /01079602/ [Concomitant]
     Dosage: 500 MG, UNK
  8. CO Q 10                            /00517201/ [Concomitant]
     Dosage: 100 MG, UNK
  9. OMEGA 3                            /01334101/ [Concomitant]
     Dosage: 1000 MG, UNK

REACTIONS (1)
  - Pain [Unknown]
